FAERS Safety Report 17304539 (Version 1)
Quarter: 2020Q1

REPORT INFORMATION
  Report Type: Spontaneous
  Country: US (occurrence: US)
  Receive Date: 20200106
  Receipt Date: 20200106
  Transmission Date: 20200409
  Serious: No
  Sender: FDA-Public Use
  Company Number: None

PATIENT
  Age: 79 Year
  Sex: Female

DRUGS (1)
  1. ENBREL [Suspect]
     Active Substance: ETANERCEPT
     Dosage: OTHER
     Route: 058

REACTIONS (4)
  - Influenza [None]
  - Asthenia [None]
  - Therapy cessation [None]
  - Decreased appetite [None]

NARRATIVE: CASE EVENT DATE: 20200104
